FAERS Safety Report 4640310-6 (Version None)
Quarter: 2005Q2

REPORT INFORMATION
  Report Type: 
  Country: None (occurrence: None)
  Receive Date: 20050419
  Receipt Date: 20050407
  Transmission Date: 20051028
  Serious: Yes (Hospitalization)
  Sender: FDA-Public Use
  Company Number: 2005UW02011

PATIENT
  Age: 89 Year
  Sex: Female

DRUGS (9)
  1. SEROQUEL [Suspect]
     Indication: AGITATION
     Dosage: 50 MG ONCE PO
     Route: 048
     Dates: start: 20050114, end: 20050114
  2. ALBUTEROL [Concomitant]
  3. AZITHROMYCIN [Concomitant]
  4. CEFTRIAXONE [Concomitant]
  5. HEPARIN [Concomitant]
  6. MECLIZINE [Concomitant]
  7. PANTOPRAZOLE SODIUM [Concomitant]
  8. PREDNISONE [Concomitant]
  9. HALDOL [Concomitant]

REACTIONS (5)
  - BLOOD GLUCOSE INCREASED [None]
  - BLOOD PRESSURE INCREASED [None]
  - HEART RATE INCREASED [None]
  - LOSS OF CONSCIOUSNESS [None]
  - RESPIRATORY ACIDOSIS [None]
